FAERS Safety Report 15099018 (Version 1)
Quarter: 2018Q3

REPORT INFORMATION
  Report Type: Spontaneous
  Country: MY (occurrence: MY)
  Receive Date: 20180702
  Receipt Date: 20180702
  Transmission Date: 20181010
  Serious: Yes (Life-Threatening, Other)
  Sender: FDA-Public Use
  Company Number: MY-PFIZER INC-2018262906

PATIENT
  Age: 77 Year
  Sex: Male

DRUGS (1)
  1. LEVOPHED [Suspect]
     Active Substance: NOREPINEPHRINE BITARTRATE
     Indication: SEPTIC SHOCK
     Dosage: 8 MG, UNK (8MG OF LEVOPHED SF IN 50CC NORMAL SALINE 0.9%)
     Route: 042
     Dates: start: 20180607, end: 20180607

REACTIONS (7)
  - Tachypnoea [Unknown]
  - Blood pressure decreased [Unknown]
  - Anaphylactic shock [Unknown]
  - Tachycardia [Unknown]
  - Wheezing [Unknown]
  - Hypertension [Unknown]
  - Hypotension [Not Recovered/Not Resolved]

NARRATIVE: CASE EVENT DATE: 20180607
